FAERS Safety Report 23520483 (Version 1)
Quarter: 2024Q1

REPORT INFORMATION
  Report Type: Report from Study
  Country: DZ (occurrence: DZ)
  Receive Date: 20240214
  Receipt Date: 20240214
  Transmission Date: 20240410
  Serious: Yes (Other)
  Sender: FDA-Public Use
  Company Number: DZ-Merck Healthcare KGaA-2024007626

PATIENT
  Age: 42 Year
  Sex: Female

DRUGS (3)
  1. REBIF [Suspect]
     Active Substance: INTERFERON BETA-1A
     Indication: Polyarthritis
     Route: 058
     Dates: start: 20230717, end: 20240201
  2. REBIF [Suspect]
     Active Substance: INTERFERON BETA-1A
     Indication: Autoimmune thyroiditis
  3. REBIF [Suspect]
     Active Substance: INTERFERON BETA-1A
     Indication: Blood pressure abnormal

REACTIONS (4)
  - Polyarthritis [Unknown]
  - Autoimmune thyroiditis [Unknown]
  - Blood pressure abnormal [Unknown]
  - Product prescribing error [Unknown]
